FAERS Safety Report 7504472 (Version 2)
Quarter: 2012Q4

REPORT INFORMATION
  Report Type: Report from Study
  Country: BR (occurrence: BR)
  Receive Date: 20100728
  Receipt Date: 20120925
  Transmission Date: 20130627
  Serious: Yes (Death, Other)
  Sender: FDA-Public Use
  Company Number: BR-PFIZER INC-2010091590

PATIENT
  Age: 62 Year
  Sex: Male

DRUGS (1)
  1. VIAGRA [Suspect]
     Dosage: 50 mg, UNK
     Route: 048

REACTIONS (6)
  - Death [Fatal]
  - Respiratory failure [Unknown]
  - Brain hypoxia [Unknown]
  - Coma [Unknown]
  - Emphysema [Unknown]
  - Feeling abnormal [Unknown]
